FAERS Safety Report 22529369 (Version 2)
Quarter: 2023Q2

REPORT INFORMATION
  Report Type: Report from Study
  Country: VN (occurrence: VN)
  Receive Date: 20230607
  Receipt Date: 20230616
  Transmission Date: 20230721
  Serious: Yes (Hospitalization)
  Sender: FDA-Public Use
  Company Number: VN-002147023-NVSC2023VN125231

PATIENT
  Age: 22 Year
  Sex: Male
  Weight: 41 kg

DRUGS (28)
  1. BEDAQUILINE [Suspect]
     Active Substance: BEDAQUILINE
     Indication: Tuberculosis
     Dosage: CODE NOT BROKEN
     Route: 048
     Dates: start: 20230426
  2. CLOFAZIMINE [Suspect]
     Active Substance: CLOFAZIMINE
     Indication: Tuberculosis
     Dosage: CODE NOT BROKEN
     Route: 048
     Dates: start: 20230426
  3. DELAMANID [Suspect]
     Active Substance: DELAMANID
     Indication: Tuberculosis
     Dosage: CODE NOT BROKEN
     Route: 048
     Dates: start: 20230426
  4. LEVOFLOXACIN [Suspect]
     Active Substance: LEVOFLOXACIN
     Indication: Tuberculosis
     Dosage: CODE NOT BROKEN
     Route: 048
     Dates: start: 20230426
  5. LINEZOLID [Suspect]
     Active Substance: LINEZOLID
     Indication: Tuberculosis
     Dosage: CODE NOT BROKEN
     Route: 048
     Dates: start: 20230426
  6. INVESTIGATIONAL PRODUCT [Suspect]
     Active Substance: INVESTIGATIONAL PRODUCT
     Indication: Tuberculosis
     Dosage: CODE NOT BROKEN
     Route: 048
     Dates: start: 20230426
  7. PLACEBO [Suspect]
     Active Substance: UNSPECIFIED INGREDIENT
     Indication: Tuberculosis
     Dosage: CODE NOT BROKEN
     Route: 048
     Dates: start: 20230426
  8. BEDAQUILINE [Suspect]
     Active Substance: BEDAQUILINE
     Dosage: CODE NOT BROKEN
     Route: 048
     Dates: start: 20230529
  9. CLOFAZIMINE [Suspect]
     Active Substance: CLOFAZIMINE
     Dosage: CODE NOT BROKEN
     Route: 048
     Dates: start: 20230529
  10. DELAMANID [Suspect]
     Active Substance: DELAMANID
     Dosage: CODE NOT BROKEN
     Route: 048
     Dates: start: 20230529
  11. LEVOFLOXACIN [Suspect]
     Active Substance: LEVOFLOXACIN
     Dosage: CODE NOT BROKEN
     Route: 048
     Dates: start: 20230529
  12. LINEZOLID [Suspect]
     Active Substance: LINEZOLID
     Dosage: CODE NOT BROKEN
     Route: 048
     Dates: start: 20230529
  13. INVESTIGATIONAL PRODUCT [Suspect]
     Active Substance: INVESTIGATIONAL PRODUCT
     Dosage: CODE NOT BROKEN
     Route: 048
     Dates: start: 20230529
  14. PLACEBO [Suspect]
     Active Substance: UNSPECIFIED INGREDIENT
     Dosage: CODE NOT BROKEN
     Route: 048
     Dates: start: 20230529
  15. BEDAQUILINE [Suspect]
     Active Substance: BEDAQUILINE
     Dosage: CODE NOT BROKEN
     Route: 048
     Dates: start: 20230610
  16. CLOFAZIMINE [Suspect]
     Active Substance: CLOFAZIMINE
     Dosage: CODE NOT BROKEN
     Route: 048
     Dates: start: 20230610
  17. DELAMANID [Suspect]
     Active Substance: DELAMANID
     Dosage: CODE NOT BROKEN
     Route: 048
     Dates: start: 20230610
  18. LEVOFLOXACIN [Suspect]
     Active Substance: LEVOFLOXACIN
     Dosage: CODE NOT BROKEN
     Route: 048
     Dates: start: 20230610
  19. LINEZOLID [Suspect]
     Active Substance: LINEZOLID
     Dosage: CODE NOT BROKEN
     Route: 048
     Dates: start: 20230610
  20. INVESTIGATIONAL PRODUCT [Suspect]
     Active Substance: INVESTIGATIONAL PRODUCT
     Dosage: CODE NOT BROKEN
     Route: 048
     Dates: start: 20230610
  21. PLACEBO [Suspect]
     Active Substance: UNSPECIFIED INGREDIENT
     Dosage: CODE NOT BROKEN
     Route: 048
     Dates: start: 20230610
  22. LEVOFLOXACIN [Suspect]
     Active Substance: LEVOFLOXACIN
     Indication: Tuberculosis
     Dosage: 1000 MG/250 MG
     Route: 048
     Dates: start: 20230426
  23. LEVOFLOXACIN [Suspect]
     Active Substance: LEVOFLOXACIN
     Dosage: 1000 MG/250 MG
     Route: 048
     Dates: start: 20230529
  24. LEVOFLOXACIN [Suspect]
     Active Substance: LEVOFLOXACIN
     Dosage: 1000 MG/250 MG
     Route: 048
     Dates: start: 20230610
  25. LINEZOLID [Suspect]
     Active Substance: LINEZOLID
     Indication: Tuberculosis
     Dosage: 1200 MG/600 MG
     Route: 048
     Dates: start: 20230426
  26. LINEZOLID [Suspect]
     Active Substance: LINEZOLID
     Dosage: 1200 MG/600 MG
     Route: 048
     Dates: start: 20230529
  27. LINEZOLID [Suspect]
     Active Substance: LINEZOLID
     Dosage: 1200 MG/600 MG
     Route: 048
     Dates: start: 20230610
  28. CARBOCYSTEINE [Concomitant]
     Active Substance: CARBOCYSTEINE
     Indication: Product used for unknown indication
     Dosage: 1000 MG, BID
     Route: 048
     Dates: start: 20230417, end: 20230512

REACTIONS (1)
  - Vomiting [Recovered/Resolved]

NARRATIVE: CASE EVENT DATE: 20230506
